FAERS Safety Report 19278746 (Version 1)
Quarter: 2021Q2

REPORT INFORMATION
  Report Type: Spontaneous
  Country: GB (occurrence: GB)
  Receive Date: 20210520
  Receipt Date: 20210520
  Transmission Date: 20210717
  Serious: Yes (Other)
  Sender: FDA-Public Use
  Company Number: GB-TEVA-2021-GB-1912694

PATIENT
  Age: 41 Year
  Sex: Female
  Weight: 79.37 kg

DRUGS (4)
  1. MILPHARM TOPIRAMATE [Concomitant]
  2. ZOPICLONE [Concomitant]
     Active Substance: ZOPICLONE
  3. SUMATRIPTAN. [Suspect]
     Active Substance: SUMATRIPTAN
     Indication: MIGRAINE
     Dosage: 100 MG
     Route: 048
     Dates: start: 20210127, end: 20210506
  4. CODEINE PHOSPHATE [Concomitant]
     Active Substance: CODEINE PHOSPHATE

REACTIONS (2)
  - Product taste abnormal [Not Recovered/Not Resolved]
  - Dysgeusia [Not Recovered/Not Resolved]

NARRATIVE: CASE EVENT DATE: 20210128
